FAERS Safety Report 13864497 (Version 2)
Quarter: 2017Q3

REPORT INFORMATION
  Report Type: Report from Study
  Country: US (occurrence: US)
  Receive Date: 20170814
  Receipt Date: 20170912
  Transmission Date: 20171127
  Serious: Yes (Death)
  Sender: FDA-Public Use
  Company Number: US-PFIZER INC-2017342812

PATIENT
  Age: 83 Year
  Sex: Female

DRUGS (1)
  1. DILTIAZEM HCL [Suspect]
     Active Substance: DILTIAZEM HYDROCHLORIDE
     Dosage: UNK

REACTIONS (6)
  - Hypotension [Fatal]
  - Bradycardia [Fatal]
  - Coma [Fatal]
  - Metabolic acidosis [Fatal]
  - Depressed level of consciousness [Fatal]
  - Toxicity to various agents [Fatal]
